FAERS Safety Report 5927435-X (Version None)
Quarter: 2008Q4

REPORT INFORMATION
  Report Type: 
  Country: None (occurrence: None)
  Receive Date: 20081022
  Receipt Date: 20081022
  Transmission Date: 20090506
  Serious: Yes (Other)
  Sender: FDA-Public Use
  Company Number: None

PATIENT
  Sex: Female
  Weight: 77.1115 kg

DRUGS (2)
  1. LAMICTAL [Suspect]
     Indication: DEPRESSION
     Dosage: 100MG 1X BEDTIME
     Dates: start: 20080711, end: 20080810
  2. SEROQUEL [Suspect]
     Indication: SLEEP DISORDER
     Dosage: 25MG 1X BEDTIME
     Dates: start: 20080703, end: 20080710

REACTIONS (2)
  - PETECHIAE [None]
  - RASH [None]
